FAERS Safety Report 21510156 (Version 1)
Quarter: 2022Q4

REPORT INFORMATION
  Report Type: Report from Study
  Country: US (occurrence: US)
  Receive Date: 20221026
  Receipt Date: 20221026
  Transmission Date: 20230113
  Serious: Yes (Disabling, Other)
  Sender: FDA-Public Use
  Company Number: US-JAZZ-2022-US-000633

PATIENT
  Sex: Male

DRUGS (1)
  1. XYWAV [Suspect]
     Active Substance: CALCIUM OXYBATE\MAGNESIUM OXYBATE\POTASSIUM OXYBATE\SODIUM OXYBATE
     Indication: Hypersomnia
     Dosage: TAKE 2.25B MY MOUTH DILUTED IN 60ML OF WATER AT BED TIME REPEATED 2+12-4HRS FOR 3 DAYS.

REACTIONS (2)
  - Cataplexy [Not Recovered/Not Resolved]
  - Agitation [Unknown]
